FAERS Safety Report 6696205-X (Version None)
Quarter: 2010Q2

REPORT INFORMATION
  Report Type: 
  Country: None (occurrence: None)
  Receive Date: 20100426
  Receipt Date: 20100415
  Transmission Date: 20101027
  Serious: Yes (Hospitalization)
  Sender: FDA-Public Use
  Company Number: US-AMGEN-QUU403449

PATIENT
  Sex: Female
  Weight: 45.9 kg

DRUGS (8)
  1. ENBREL [Suspect]
     Indication: RHEUMATOID ARTHRITIS
     Route: 058
     Dates: start: 20020101
  2. ASCORBIC ACID [Concomitant]
  3. VITAMIN C [Concomitant]
     Route: 048
  4. CALCIUM CARBONATE/VITAMIN D [Concomitant]
     Route: 048
  5. CELEBREX [Concomitant]
     Route: 048
  6. VITRON-C [Concomitant]
     Route: 048
  7. FERROUS SULFATE TAB [Concomitant]
  8. DARVOCET-N 100 [Concomitant]
     Route: 048

REACTIONS (2)
  - LUMBAR SPINAL STENOSIS [None]
  - RHEUMATOID ARTHRITIS [None]
